FAERS Safety Report 26129589 (Version 1)
Quarter: 2025Q4

REPORT INFORMATION
  Report Type: Report from Study
  Country: US (occurrence: US)
  Receive Date: 20251208
  Receipt Date: 20251208
  Transmission Date: 20260117
  Serious: No
  Sender: DR REDDYS
  Company Number: US-DRL-USA-USA/2025/11/017936

PATIENT
  Age: 25 Year
  Sex: Female
  Weight: 58 kg

DRUGS (2)
  1. JAVYGTOR [Suspect]
     Active Substance: SAPROPTERIN DIHYDROCHLORIDE
     Indication: Phenylketonuria
     Route: 048
     Dates: start: 20251112, end: 20251119
  2. JAVYGTOR [Suspect]
     Active Substance: SAPROPTERIN DIHYDROCHLORIDE
     Indication: Phenylketonuria
     Route: 048
     Dates: start: 20251112, end: 20251119

REACTIONS (5)
  - Abdominal discomfort [Not Recovered/Not Resolved]
  - Arthralgia [Not Recovered/Not Resolved]
  - Cough [Not Recovered/Not Resolved]
  - Sleep disorder [Not Recovered/Not Resolved]
  - Increased appetite [Not Recovered/Not Resolved]

NARRATIVE: CASE EVENT DATE: 20251115
